FAERS Safety Report 9317978 (Version 1)
Quarter: 2013Q2

REPORT INFORMATION
  Report Type: Spontaneous
  Country: US (occurrence: US)
  Receive Date: 20130530
  Receipt Date: 20130530
  Transmission Date: 20140414
  Serious: No
  Sender: FDA-Public Use
  Company Number: US-NOVEN-12US005451

PATIENT
  Age: 5 Year
  Sex: Male
  Weight: 19.5 kg

DRUGS (3)
  1. DAYTRANA [Suspect]
     Indication: ATTENTION DEFICIT/HYPERACTIVITY DISORDER
     Dosage: 10 MG, QD
     Route: 062
     Dates: start: 201204
  2. ZYRTEC [Concomitant]
     Indication: SEASONAL ALLERGY
     Dosage: UNK
     Route: 048
  3. SINGULAIR [Concomitant]
     Indication: SEASONAL ALLERGY
     Dosage: UNK
     Route: 048

REACTIONS (2)
  - Abnormal behaviour [Not Recovered/Not Resolved]
  - Off label use [Recovered/Resolved]
